FAERS Safety Report 13736041 (Version 2)
Quarter: 2017Q3

REPORT INFORMATION
  Report Type: Report from Study
  Country: US (occurrence: BR)
  Receive Date: 20170710
  Receipt Date: 20170721
  Transmission Date: 20171127
  Serious: Yes (Death, Hospitalization)
  Sender: FDA-Public Use
  Company Number: US-SUNOVION-2017SUN002989

PATIENT
  Age: 79 Year
  Sex: Female

DRUGS (2)
  1. INDACATEROL AND GLYCOPYRROLATE [Suspect]
     Active Substance: GLYCOPYRROLATE\INDACATEROL MALEATE
     Indication: DYSPNOEA
     Dosage: ULTIBRO BREEZHALER (INDACATEROL, GLYCOPYRRONIUM BROMIDE) CAPSULE, 110/50 UG, 1 DF QD
     Route: 055
     Dates: start: 20170617, end: 20170629
  2. INDACATEROL AND GLYCOPYRROLATE [Suspect]
     Active Substance: GLYCOPYRROLATE\INDACATEROL MALEATE
     Indication: RESPIRATORY DISORDER

REACTIONS (7)
  - Dyspnoea [Unknown]
  - Death [Fatal]
  - Asthenia [Unknown]
  - Neoplasm malignant [Unknown]
  - Product use in unapproved indication [Unknown]
  - Oxygen consumption decreased [Unknown]
  - Tuberculosis [Unknown]

NARRATIVE: CASE EVENT DATE: 20170629
